FAERS Safety Report 15438825 (Version 1)
Quarter: 2018Q3

REPORT INFORMATION
  Report Type: Spontaneous
  Country: GB (occurrence: GB)
  Receive Date: 20180928
  Receipt Date: 20180928
  Transmission Date: 20181010
  Serious: Yes (Disabling, Other)
  Sender: FDA-Public Use
  Company Number: GB-SUN PHARMACEUTICAL INDUSTRIES LTD-2018RR-185710

PATIENT
  Age: 51 Year
  Sex: Male

DRUGS (3)
  1. CITALOPRAM [Suspect]
     Active Substance: CITALOPRAM HYDROBROMIDE
     Dosage: IN THE MORNING. INCREASED FROM 20MG IN THE MORNING
     Route: 048
     Dates: start: 201801, end: 201808
  2. CO?BENELDOPA [Concomitant]
     Active Substance: BENSERAZIDE HYDROCHLORIDE\LEVODOPA
     Indication: PRODUCT USED FOR UNKNOWN INDICATION
     Dosage: STARTED RECENTLY ()
     Route: 065
     Dates: start: 2018
  3. CITALOPRAM [Suspect]
     Active Substance: CITALOPRAM HYDROBROMIDE
     Indication: DEPRESSION
     Dosage: IN THE MORNING
     Route: 048
     Dates: end: 201801

REACTIONS (2)
  - Condition aggravated [Recovering/Resolving]
  - Suicidal ideation [Recovering/Resolving]
